FAERS Safety Report 21742991 (Version 2)
Quarter: 2023Q1

REPORT INFORMATION
  Report Type: Report from Study
  Country: US (occurrence: US)
  Receive Date: 20221217
  Receipt Date: 20230221
  Transmission Date: 20230418
  Serious: Yes (Other)
  Sender: FDA-Public Use
  Company Number: US-ABBVIE-4240782

PATIENT
  Age: 47 Year
  Sex: Female

DRUGS (1)
  1. RINVOQ [Suspect]
     Active Substance: UPADACITINIB
     Indication: Product used for unknown indication
     Route: 048
     Dates: start: 20220401, end: 20221123

REACTIONS (4)
  - Shoulder operation [Recovering/Resolving]
  - Pain [Unknown]
  - Adhesion [Unknown]
  - Endometriosis [Unknown]

NARRATIVE: CASE EVENT DATE: 20221209
